FAERS Safety Report 11068804 (Version 2)
Quarter: 2015Q3

REPORT INFORMATION
  Report Type: Report from Study
  Country: JP (occurrence: JP)
  Receive Date: 20150427
  Receipt Date: 20150724
  Transmission Date: 20151125
  Serious: Yes (Death, Life-Threatening, Hospitalization, Other)
  Sender: FDA-Public Use
  Company Number: JP-BIOGENIDEC-2014BI128002

PATIENT
  Age: 36 Year
  Sex: Male

DRUGS (11)
  1. KAYTWO [Concomitant]
     Active Substance: MENATETRENONE
     Dates: start: 20130906, end: 20150402
  2. SELBEX [Concomitant]
     Active Substance: TEPRENONE
     Dates: start: 201107, end: 20150402
  3. GOODMIN [Concomitant]
     Active Substance: BROTIZOLAM
     Dates: start: 20141202, end: 20150402
  4. TAKEPRON [Concomitant]
     Active Substance: LANSOPRAZOLE
     Dates: start: 201107, end: 20150402
  5. TYSABRI [Suspect]
     Active Substance: NATALIZUMAB
     Indication: MULTIPLE SCLEROSIS
     Route: 042
     Dates: start: 20140807, end: 20141006
  6. QUETIAPINE [Concomitant]
     Active Substance: QUETIAPINE
     Indication: MOOD DISORDER DUE TO A GENERAL MEDICAL CONDITION
     Route: 048
     Dates: start: 20150323, end: 20150404
  7. PREDNISOLONE. [Concomitant]
     Active Substance: PREDNISOLONE
     Dates: start: 201107, end: 20150402
  8. GILENYA [Concomitant]
     Active Substance: FINGOLIMOD HYDROCHLORIDE
     Indication: MULTIPLE SCLEROSIS
     Route: 048
     Dates: start: 20150210, end: 20150402
  9. EDIROL [Concomitant]
     Active Substance: ELDECALCITOL
     Dates: start: 20121214, end: 20150402
  10. QUETIAPINE [Concomitant]
     Active Substance: QUETIAPINE
     Indication: MOOD DISORDER DUE TO A GENERAL MEDICAL CONDITION
     Route: 048
     Dates: start: 20141127, end: 20150322
  11. TYSABRI [Suspect]
     Active Substance: NATALIZUMAB
     Indication: MULTIPLE SCLEROSIS
     Route: 042
     Dates: start: 20141203, end: 20141203

REACTIONS (4)
  - Completed suicide [Fatal]
  - Agitation [Unknown]
  - Suicide attempt [Not Recovered/Not Resolved]
  - Confusional state [Not Recovered/Not Resolved]

NARRATIVE: CASE EVENT DATE: 201411
